FAERS Safety Report 6145367-1 (Version None)
Quarter: 2009Q2

REPORT INFORMATION
  Report Type: 
  Country: None (occurrence: None)
  Receive Date: 20090402
  Receipt Date: 20090331
  Transmission Date: 20091009
  Serious: Yes (Hospitalization)
  Sender: FDA-Public Use
  Company Number: 1000005168

PATIENT
  Age: 88 Year
  Sex: Female

DRUGS (2)
  1. BYSTOLIC [Suspect]
     Indication: CARDIAC FAILURE CONGESTIVE
     Dosage: 5 MG (5 MG, 1 IN 1 D), ORAL
     Route: 048
  2. ZOLOFT [Suspect]
     Indication: DEPRESSION
     Dosage: 50 MG (50 MG), ORAL
     Route: 048

REACTIONS (2)
  - DRUG INTERACTION [None]
  - HEART RATE DECREASED [None]
